FAERS Safety Report 5924742-1 (Version None)
Quarter: 2008Q4

REPORT INFORMATION
  Report Type: 
  Country: None (occurrence: None)
  Receive Date: 20081017
  Receipt Date: 20071002
  Transmission Date: 20090506
  Serious: Yes (Hospitalization)
  Sender: FDA-Public Use
  Company Number: 230261K08USA

PATIENT
  Age: 45 Year
  Sex: Female
  Weight: 68 kg

DRUGS (9)
  1. REBIF [Suspect]
     Indication: MULTIPLE SCLEROSIS
     Dosage: 44 MCG, 3 IN 1 WEEKS, SUBCUTANEOUS
     Route: 058
     Dates: start: 20040405
  2. KEPPRA(LEVETITRACETAM) [Concomitant]
  3. SEROQUEL [Concomitant]
  4. OXYBUTYNIN CHLORIDE [Concomitant]
  5. PREVACID [Concomitant]
  6. ULTRAM [Concomitant]
  7. VALIUM [Concomitant]
  8. ASPIRIN [Concomitant]
  9. BACLOFEN PUMP(BACLOFEN) [Concomitant]

REACTIONS (4)
  - NEUROGENIC BOWEL [None]
  - SEPSIS [None]
  - SMALL INTESTINAL PERFORATION [None]
  - VOLVULUS [None]
